FAERS Safety Report 9418681 (Version 2)
Quarter: 2013Q4

REPORT INFORMATION
  Report Type: Spontaneous
  Country: GB (occurrence: GB)
  Receive Date: 20130725
  Receipt Date: 20131106
  Transmission Date: 20140711
  Serious: Yes (Other)
  Sender: FDA-Public Use
  Company Number: GB-ACCORD-018579

PATIENT
  Age: 54 Year
  Sex: Female
  Weight: 63 kg

DRUGS (5)
  1. FLUCLOXACILLIN [Concomitant]
  2. CODEINE PHOSPHATE [Suspect]
     Indication: PAIN
  3. TRAMADOL [Suspect]
     Indication: PRODUCT USED FOR UNKNOWN INDICATION
  4. CLINDAMYCIN [Concomitant]
     Dates: start: 20130619
  5. PARACETAMOL [Suspect]
     Indication: POST PROCEDURAL INFECTION
     Route: 048
     Dates: start: 20130702, end: 20130703

REACTIONS (9)
  - Headache [Not Recovered/Not Resolved]
  - Photophobia [Not Recovered/Not Resolved]
  - Dizziness [Not Recovered/Not Resolved]
  - Nausea [Not Recovered/Not Resolved]
  - Pain [Not Recovered/Not Resolved]
  - Migraine [Unknown]
  - Chest pain [Unknown]
  - Vomiting [Unknown]
  - Gastrooesophageal reflux disease [Unknown]
